FAERS Safety Report 13563324 (Version 5)
Quarter: 2018Q3

REPORT INFORMATION
  Report Type: Spontaneous
  Country: FR (occurrence: FR)
  Receive Date: 20170519
  Receipt Date: 20180706
  Transmission Date: 20181010
  Serious: Yes (Death, Life-Threatening, Hospitalization, Other)
  Sender: FDA-Public Use
  Company Number: FR-UCBSA-2017018853

PATIENT
  Age: 34 Year
  Sex: Male

DRUGS (7)
  1. LACOSAMIDE. [Suspect]
     Active Substance: LACOSAMIDE
     Dosage: ESTIMATED INGESTION 8.4 G
  2. METOPROLOL. [Suspect]
     Active Substance: METOPROLOL
     Dosage: ESTIMATED INGESTION 3.5 G
  3. LAMOTRIGINE. [Suspect]
     Active Substance: LAMOTRIGINE
     Indication: EPILEPSY
     Dosage: 200 MG, ONCE DAILY (QD)
  4. CLOBAZAM [Concomitant]
     Active Substance: CLOBAZAM
     Indication: EPILEPSY
     Dosage: 5 MG, ONCE DAILY (QD)
  5. LACOSAMIDE. [Suspect]
     Active Substance: LACOSAMIDE
     Indication: EPILEPSY
     Dosage: 400 MG, ONCE DAILY (QD)
     Route: 048
  6. PERAMPANEL [Concomitant]
     Active Substance: PERAMPANEL
     Indication: EPILEPSY
     Dosage: 8 MG, ONCE DAILY (QD)
  7. METOPROLOL. [Suspect]
     Active Substance: METOPROLOL
     Indication: PRODUCT USED FOR UNKNOWN INDICATION
     Dosage: 100 MG, ONCE DAILY (QD)
     Route: 048

REACTIONS (10)
  - Toxicity to various agents [Fatal]
  - Cardiac arrest [Fatal]
  - Mydriasis [Unknown]
  - Atrioventricular block [Unknown]
  - Metabolic acidosis [Unknown]
  - Shock [Fatal]
  - Renal failure [Unknown]
  - Bradypnoea [Unknown]
  - Multiple organ dysfunction syndrome [Fatal]
  - Epilepsy [Unknown]
